FAERS Safety Report 10274840 (Version 3)
Quarter: 2014Q3

REPORT INFORMATION
  Report Type: Spontaneous
  Country: CA (occurrence: CA)
  Receive Date: 20140702
  Receipt Date: 20140822
  Transmission Date: 20150326
  Serious: Yes (Hospitalization, Other)
  Sender: FDA-Public Use
  Company Number: CA-ELI_LILLY_AND_COMPANY-CA201406008153

PATIENT
  Age: 41 Year
  Sex: Male
  Weight: 83.9 kg

DRUGS (2)
  1. HUMALOG [Suspect]
     Active Substance: INSULIN LISPRO
     Indication: TYPE 1 DIABETES MELLITUS
     Dosage: 16 U, TID
     Route: 058
     Dates: start: 20140403, end: 20140704
  2. LANTUS [Suspect]
     Active Substance: INSULIN GLARGINE
     Indication: TYPE 1 DIABETES MELLITUS
     Route: 065

REACTIONS (6)
  - Weight decreased [Unknown]
  - Diabetic gastroparesis [Recovered/Resolved with Sequelae]
  - Vomiting [Recovered/Resolved with Sequelae]
  - Vomiting [Recovered/Resolved with Sequelae]
  - Gastritis [Unknown]
  - Dehydration [Unknown]

NARRATIVE: CASE EVENT DATE: 20140609
